FAERS Safety Report 8480980-8 (Version None)
Quarter: 2012Q3

REPORT INFORMATION
  Report Type: 
  Country: None (occurrence: None)
  Receive Date: 20120702
  Receipt Date: 20120622
  Transmission Date: 20120928
  Serious: Yes (Life-Threatening)
  Sender: FDA-Public Use
  Company Number: IT-JNJFOC-20120612489

PATIENT
  Age: 12 Year
  Sex: Female

DRUGS (2)
  1. REMICADE [Suspect]
     Indication: CROHN'S DISEASE
     Route: 042
     Dates: start: 20120130, end: 20120515
  2. REUMAFLEX [Concomitant]
     Indication: CROHN'S DISEASE
     Route: 030

REACTIONS (3)
  - OXYGEN SATURATION DECREASED [None]
  - DYSPNOEA [None]
  - INFUSION RELATED REACTION [None]
